FAERS Safety Report 4367613-7 (Version None)
Quarter: 2004Q2

REPORT INFORMATION
  Report Type: 
  Country: None (occurrence: None)
  Receive Date: 20040601
  Receipt Date: 20040511
  Transmission Date: 20050107
  Serious: Yes (Death, Life-Threatening)
  Sender: FDA-Public Use
  Company Number: FI-MERCK-0405FIN00005

PATIENT
  Age: 55 Year
  Sex: Male

DRUGS (1)
  1. VIOXX [Suspect]
     Route: 048

REACTIONS (1)
  - GASTROINTESTINAL ULCER HAEMORRHAGE [None]
